FAERS Safety Report 20139051 (Version 1)
Quarter: 2021Q4

REPORT INFORMATION
  Report Type: Report from Study
  Country: DE (occurrence: DE)
  Receive Date: 20211202
  Receipt Date: 20211202
  Transmission Date: 20220303
  Serious: Yes (Hospitalization)
  Sender: FDA-Public Use
  Company Number: None

PATIENT
  Age: 43 Year
  Sex: Female
  Weight: 65 kg

DRUGS (3)
  1. LETROZOLE [Suspect]
     Active Substance: LETROZOLE
     Indication: HER2 negative breast cancer
     Dosage: 2.5 MG, QD
     Route: 065
     Dates: start: 20181012
  2. PALBOCICLIB [Suspect]
     Active Substance: PALBOCICLIB
     Indication: HER2 negative breast cancer
     Dosage: 125 MG, QD (FROM DAY 1 TO DAY 21)
     Route: 048
     Dates: start: 20181012
  3. ZOMETA [Suspect]
     Active Substance: ZOLEDRONIC ACID
     Indication: Metastases to bone
     Dosage: UNK
     Route: 042
     Dates: start: 20181012, end: 20201105

REACTIONS (1)
  - Osteonecrosis of jaw [Recovered/Resolved]

NARRATIVE: CASE EVENT DATE: 20201204
